FAERS Safety Report 17156475 (Version 2)
Quarter: 2022Q1

REPORT INFORMATION
  Report Type: Other
  Country: ES (occurrence: ES)
  Receive Date: 20191216
  Receipt Date: 20220107
  Transmission Date: 20220423
  Serious: Yes (Other)
  Sender: FDA-Public Use
  Company Number: ES-TEVA-2019-ES-1142654

PATIENT
  Age: 55 Year
  Sex: Male

DRUGS (4)
  1. SOFOSBUVIR [Suspect]
     Active Substance: SOFOSBUVIR
     Indication: Chronic hepatitis C
     Route: 048
  2. SOFOSBUVIR\VELPATASVIR\VOXILAPREVIR [Suspect]
     Active Substance: SOFOSBUVIR\VELPATASVIR\VOXILAPREVIR
     Indication: Chronic hepatitis C
     Dosage: 1 DOSAGE FORMS DAILY; SOFOSBUVIR: 400 MG; VELPATASVIR: 100 MG; VOXILAPREVIR: 100 MG; THERAPY COMPLET
     Route: 048
  3. RIBAVIRIN [Suspect]
     Active Substance: RIBAVIRIN
     Indication: Chronic hepatitis C
     Route: 048
  4. DACLATASVIR [Suspect]
     Active Substance: DACLATASVIR
     Indication: Chronic hepatitis C
     Route: 048

REACTIONS (1)
  - Treatment failure [Unknown]
